FAERS Safety Report 8540253-1 (Version None)
Quarter: 2012Q3

REPORT INFORMATION
  Report Type: 
  Country: None (occurrence: None)
  Receive Date: 20120713
  Receipt Date: 20120629
  Transmission Date: 20120928
  Serious: Yes (Other)
  Sender: FDA-Public Use
  Company Number: JP-2012-15688

PATIENT
  Age: 59 Year
  Sex: Male

DRUGS (2)
  1. PLETAL [Suspect]
     Indication: CEREBRAL ARTERY STENOSIS
     Dosage: ORAL
     Route: 048
     Dates: start: 20110822
  2. LIPILOU (ATROVASTATIN CALCIUM ANHYDROUS) [Concomitant]

REACTIONS (1)
  - CEREBRAL ARTERY OCCLUSION [None]
